FAERS Safety Report 9511382 (Version 1)
Quarter: 2013Q3

REPORT INFORMATION
  Report Type: Spontaneous
  Country: US (occurrence: None)
  Receive Date: 20130909
  Receipt Date: 20130909
  Transmission Date: 20140515
  Serious: Yes (Disabling)
  Sender: FDA-Public Use
  Company Number: None

PATIENT
  Age: 60 Day
  Sex: Female
  Weight: 98.43 kg

DRUGS (6)
  1. METFORMIN [Suspect]
     Indication: DIABETES MELLITUS
     Dosage: 1 TWICE DAILY TAKEN BY MOUTH
     Route: 048
     Dates: start: 20030306, end: 20130718
  2. GLYBURIDE [Suspect]
     Indication: DIABETES MELLITUS
     Dosage: 1 ONCE DAILY TAKEN BY MOUTH
     Route: 048
  3. LOW DOSE ASPIRIN [Concomitant]
  4. PRAVASTATIN SODIUM [Concomitant]
  5. LISINOPRIL 20 MG [Concomitant]
  6. LEVIMIR FLEX PEN [Concomitant]

REACTIONS (1)
  - Renal disorder [None]
